FAERS Safety Report 7118082-5 (Version None)
Quarter: 2010Q4

REPORT INFORMATION
  Report Type: 
  Country: None (occurrence: None)
  Receive Date: 20101123
  Receipt Date: 20100517
  Transmission Date: 20110411
  Serious: No
  Sender: FDA-Public Use
  Company Number: US-BRISTOL-MYERS SQUIBB COMPANY-15160385

PATIENT
  Sex: Female

DRUGS (2)
  1. KENALOG [Suspect]
     Indication: PRURITUS
     Dosage: SPRAY: 0.147MG/G 63G AEROSOL
     Route: 061
  2. KENALOG [Suspect]
     Indication: PRURITUS
     Route: 061

REACTIONS (1)
  - THERAPEUTIC RESPONSE DECREASED [None]
